FAERS Safety Report 25848644 (Version 1)
Quarter: 2025Q3

REPORT INFORMATION
  Report Type: Spontaneous
  Country: US (occurrence: US)
  Receive Date: 20250925
  Receipt Date: 20250925
  Transmission Date: 20251020
  Serious: No
  Sender: MYLAN
  Company Number: US-MYLANLABS-2025M1078776

PATIENT
  Sex: Female

DRUGS (8)
  1. EFFEXOR XR EXTENDED-RELEASE [Suspect]
     Active Substance: VENLAFAXINE HYDROCHLORIDE
     Indication: Depression
     Dosage: 150 MILLIGRAM, QD (ONCE DAILY)
  2. EFFEXOR XR EXTENDED-RELEASE [Suspect]
     Active Substance: VENLAFAXINE HYDROCHLORIDE
     Indication: Anxiety
     Dosage: 150 MILLIGRAM, QD (ONCE DAILY)
     Route: 065
  3. EFFEXOR XR EXTENDED-RELEASE [Suspect]
     Active Substance: VENLAFAXINE HYDROCHLORIDE
     Dosage: 150 MILLIGRAM, QD (ONCE DAILY)
     Route: 065
  4. EFFEXOR XR EXTENDED-RELEASE [Suspect]
     Active Substance: VENLAFAXINE HYDROCHLORIDE
     Dosage: 150 MILLIGRAM, QD (ONCE DAILY)
  5. ARIPIPRAZOLE [Concomitant]
     Active Substance: ARIPIPRAZOLE
  6. ARIPIPRAZOLE [Concomitant]
     Active Substance: ARIPIPRAZOLE
     Route: 065
  7. ARIPIPRAZOLE [Concomitant]
     Active Substance: ARIPIPRAZOLE
     Route: 065
  8. ARIPIPRAZOLE [Concomitant]
     Active Substance: ARIPIPRAZOLE

REACTIONS (3)
  - Dizziness [Unknown]
  - Nausea [Unknown]
  - Vomiting [Unknown]
